FAERS Safety Report 8849105 (Version 2)
Quarter: 2014Q1

REPORT INFORMATION
  Report Type: Spontaneous
  Country: US (occurrence: US)
  Receive Date: 20121019
  Receipt Date: 20140121
  Transmission Date: 20141002
  Serious: Yes (Hospitalization, Other)
  Sender: FDA-Public Use
  Company Number: US-BAYER-2012-107995

PATIENT
  Age: 23 Year
  Sex: Female

DRUGS (9)
  1. YAZ [Suspect]
     Dosage: UNK
     Dates: start: 200412
  2. YASMIN [Suspect]
     Dosage: UNK
     Dates: start: 200412
  3. OCELLA [Suspect]
     Dosage: UNK
     Dates: start: 200412
  4. MAXALT [Concomitant]
  5. PEPCID [Concomitant]
  6. PEPTO BISMOL [Concomitant]
  7. PYRIDIUM [Concomitant]
  8. CIPRO [Concomitant]
  9. ANZEMET [Concomitant]

REACTIONS (3)
  - Biliary dyskinesia [None]
  - Cholecystitis chronic [None]
  - Cholecystitis acute [None]
